FAERS Safety Report 21119418 (Version 2)
Quarter: 2022Q3

REPORT INFORMATION
  Report Type: Spontaneous
  Country: DE (occurrence: DE)
  Receive Date: 20220722
  Receipt Date: 20220818
  Transmission Date: 20221027
  Serious: Yes (Other)
  Sender: FDA-Public Use
  Company Number: DE-GSKCCFEMEA-Case-01536997_AE-60324

PATIENT

DRUGS (1)
  1. FLUTICASONE PROPIONATE\SALMETEROL XINAFOATE [Suspect]
     Active Substance: FLUTICASONE PROPIONATE\SALMETEROL XINAFOATE
     Indication: Product used for unknown indication
     Dosage: UNK 50/250 MKG, 50MCG/100MCG 3X60D
     Route: 055

REACTIONS (4)
  - Foreign body in throat [Unknown]
  - Vocal cord dysfunction [Unknown]
  - Device difficult to use [Unknown]
  - Product complaint [Unknown]
